FAERS Safety Report 6723330-7 (Version None)
Quarter: 2010Q2

REPORT INFORMATION
  Report Type: 
  Country: None (occurrence: None)
  Receive Date: 20100513
  Receipt Date: 20100412
  Transmission Date: 20101027
  Serious: No
  Sender: FDA-Public Use
  Company Number: US-BAYER-201014252BCC

PATIENT
  Age: 63 Year
  Sex: Female
  Weight: 44 kg

DRUGS (11)
  1. ALEVE (CAPLET) [Suspect]
     Indication: SCIATICA
     Route: 048
     Dates: start: 20100201
  2. ALEVE (CAPLET) [Suspect]
     Dosage: TOTAL DAILY DOSE: 880 MG  UNIT DOSE: 220 MG
     Route: 048
     Dates: start: 20100201
  3. ALEVE (CAPLET) [Suspect]
     Route: 048
     Dates: start: 20100201, end: 20100410
  4. STEROID INJECTION [Concomitant]
     Dosage: 3 INJECTION
  5. LYRICA [Concomitant]
     Dates: end: 20100301
  6. TRAMADOL HCL [Concomitant]
  7. COSOPT [Concomitant]
     Dosage: ONE DROP IN EACH EYE
     Route: 061
  8. ALPHAGAN P [Concomitant]
     Dosage: ONE DROP IN EACH EYE
     Route: 061
  9. RESTASIS [Concomitant]
  10. SYNTHROID [Concomitant]
  11. LISINOPRIL [Concomitant]

REACTIONS (3)
  - BLOOD BLISTER [None]
  - DYSPEPSIA [None]
  - PAIN IN EXTREMITY [None]
